FAERS Safety Report 9406248 (Version 1)
Quarter: 2013Q3

REPORT INFORMATION
  Report Type: Spontaneous
  Country: US (occurrence: US)
  Receive Date: 20130717
  Receipt Date: 20130717
  Transmission Date: 20140515
  Serious: No
  Sender: FDA-Public Use
  Company Number: US-BAUSCH-BL-2013-000214

PATIENT
  Age: 65 Year
  Sex: Female

DRUGS (8)
  1. BESIVANCE (BESIFLOXACIN OPHTHALMIC SUSPENSION) 0.6% [Suspect]
     Indication: ULCERATIVE KERATITIS
     Dosage: 1 DROP IN LEFT EYE; THREE TIMES DAILY; OPHTHALMIC
     Route: 047
     Dates: start: 20130111
  2. BESIVANCE (BESIFLOXACIN OPHTHALMIC SUSPENSION) 0.6% [Suspect]
     Indication: OFF LABEL USE
  3. MURO 128 [Suspect]
     Indication: CORNEAL OEDEMA
     Dosage: 1 DROP IN LEFT EYE; EVERY 12 HOURS; OPTHALMIC
     Route: 047
     Dates: start: 20130111
  4. FUROSEMIDE [Concomitant]
  5. CARVEDILOL [Concomitant]
  6. LOSARTAN POTASSIUM [Concomitant]
  7. LEVOTHYROXINE SODIUM [Concomitant]
  8. ESOMEPRAZOLE MAGNESIUM [Concomitant]

REACTIONS (1)
  - Foreign body sensation in eyes [Recovered/Resolved]
